FAERS Safety Report 4617915-1 (Version None)
Quarter: 2005Q1

REPORT INFORMATION
  Report Type: 
  Country: None (occurrence: None)
  Receive Date: 20050324
  Receipt Date: 20050315
  Transmission Date: 20050727
  Serious: Yes (Life-Threatening, Hospitalization)
  Sender: FDA-Public Use
  Company Number: US-NOVOPROD-242954

PATIENT
  Age: 20 Month
  Sex: Male

DRUGS (1)
  1. NOVOLOG [Suspect]
     Indication: ACCIDENTAL EXPOSURE
     Dosage: UNKNOWN
     Dates: start: 20050301, end: 20050301

REACTIONS (7)
  - CHILD ABUSE [None]
  - CONVULSION [None]
  - HYPOGLYCAEMIA [None]
  - HYPOGLYCAEMIC COMA [None]
  - HYPOGLYCAEMIC SEIZURE [None]
  - INTENTIONAL MISUSE [None]
  - LOSS OF CONSCIOUSNESS [None]
